FAERS Safety Report 4990322-8 (Version None)
Quarter: 2006Q2

REPORT INFORMATION
  Report Type: 
  Country: None (occurrence: None)
  Receive Date: 20060502
  Receipt Date: 20060502
  Transmission Date: 20061013
  Serious: No
  Sender: FDA-Public Use
  Company Number: None

PATIENT
  Age: 15 Year
  Sex: Female
  Weight: 56.6996 kg

DRUGS (3)
  1. ABILIFY [Suspect]
     Indication: BIPOLAR DISORDER
     Dosage: 2.5 MG QHS PO
     Route: 048
  2. ABILIFY [Suspect]
     Indication: MAJOR DEPRESSION
     Dosage: 2.5 MG QHS PO
     Route: 048
  3. ABILIFY [Suspect]
     Indication: PANIC DISORDER

REACTIONS (4)
  - COGWHEEL RIGIDITY [None]
  - DYSARTHRIA [None]
  - EXTRAPYRAMIDAL DISORDER [None]
  - MUSCULOSKELETAL STIFFNESS [None]
